FAERS Safety Report 7169721-4 (Version None)
Quarter: 2010Q4

REPORT INFORMATION
  Report Type: 
  Country: None (occurrence: None)
  Receive Date: 20101217
  Receipt Date: 20101210
  Transmission Date: 20110411
  Serious: Yes (Other)
  Sender: FDA-Public Use
  Company Number: US-JNJFOC-20100800366

PATIENT
  Sex: Female

DRUGS (1)
  1. LEVAQUIN [Suspect]
     Indication: URINARY TRACT INFECTION
     Route: 048

REACTIONS (6)
  - CONJUNCTIVITIS [None]
  - CONNECTIVE TISSUE DISORDER [None]
  - GALLBLADDER DISORDER [None]
  - MUSCULOSKELETAL DISORDER [None]
  - TENDONITIS [None]
  - TREMOR [None]
